FAERS Safety Report 11520241 (Version 1)
Quarter: 2015Q3

REPORT INFORMATION
  Report Type: Spontaneous
  Country: US (occurrence: US)
  Receive Date: 20150918
  Receipt Date: 20150918
  Transmission Date: 20151125
  Serious: No
  Sender: FDA-Public Use
  Company Number: US-RB-075144-15

PATIENT

DRUGS (2)
  1. MUCINEX [Suspect]
     Active Substance: GUAIFENESIN
     Indication: EMPHYSEMA
  2. MUCINEX [Suspect]
     Active Substance: GUAIFENESIN
     Indication: CHRONIC OBSTRUCTIVE PULMONARY DISEASE
     Dosage: 1200MG. FIRST USED ON ??-AUG-2014 AND LAST USED ON 27-JAN-2015 AT 8:00 AM.,BID
     Route: 065

REACTIONS (3)
  - Product use issue [Unknown]
  - No adverse event [Unknown]
  - Incorrect drug administration duration [Unknown]

NARRATIVE: CASE EVENT DATE: 201408
